FAERS Safety Report 21253143 (Version 1)
Quarter: 2022Q3

REPORT INFORMATION
  Report Type: Spontaneous
  Country: FR (occurrence: FR)
  Receive Date: 20220825
  Receipt Date: 20220825
  Transmission Date: 20221027
  Serious: Yes (Hospitalization, Other)
  Sender: FDA-Public Use
  Company Number: None

PATIENT
  Age: 28 Year
  Sex: Female
  Weight: 65 kg

DRUGS (3)
  1. RAMIPRIL [Suspect]
     Active Substance: RAMIPRIL
     Indication: Ejection fraction decreased
     Dosage: 1X2.5
     Route: 048
     Dates: start: 20201103
  2. BISOPROLOL [Suspect]
     Active Substance: BISOPROLOL
     Indication: Ejection fraction decreased
     Dosage: 1X1.25
     Route: 048
     Dates: start: 20210604
  3. JARDIANCE [Suspect]
     Active Substance: EMPAGLIFLOZIN
     Indication: Ejection fraction decreased
     Dosage: 1X10MG
     Route: 048
     Dates: start: 20220621

REACTIONS (1)
  - Acute kidney injury [Recovering/Resolving]

NARRATIVE: CASE EVENT DATE: 20220720
